FAERS Safety Report 9695730 (Version 1)
Quarter: 2013Q4

REPORT INFORMATION
  Report Type: Spontaneous
  Country: CA (occurrence: CA)
  Receive Date: 20131119
  Receipt Date: 20131119
  Transmission Date: 20140711
  Serious: Yes (Other)
  Sender: FDA-Public Use
  Company Number: CA-AMGEN-CANSP2013081383

PATIENT
  Age: 45 Year
  Sex: Female

DRUGS (6)
  1. NEUPOGEN [Suspect]
     Indication: PRODUCT USED FOR UNKNOWN INDICATION
     Dosage: 1 ML/300 MCG
     Route: 065
  2. CHEMOTHERAPEUTICS [Concomitant]
     Dosage: UNK
  3. ATIVAN [Concomitant]
     Dosage: 1 MG, AS NECESSARY
  4. TRAZODONE [Concomitant]
     Dosage: 50 MG, AS NECESSARY
  5. DEXAMETHASONE [Concomitant]
     Dosage: 4 MG BEFORE CHEMO
  6. PROCHLORPERAZINE [Concomitant]
     Dosage: UNK

REACTIONS (5)
  - Loss of consciousness [Recovered/Resolved]
  - Bedridden [Recovered/Resolved]
  - Dizziness [Recovered/Resolved]
  - Dysstasia [Recovered/Resolved]
  - Bone pain [Recovered/Resolved]
